FAERS Safety Report 6347424-3 (Version None)
Quarter: 2009Q3

REPORT INFORMATION
  Report Type: 
  Country: None (occurrence: None)
  Receive Date: 20090910
  Receipt Date: 20090901
  Transmission Date: 20100115
  Serious: Yes (Other)
  Sender: FDA-Public Use
  Company Number: US-BAXTER-2009BH013471

PATIENT

DRUGS (3)
  1. TISSEEL VH/SD FROZEN [Suspect]
     Indication: SURGERY
     Route: 065
  2. TISSEEL VH/SD FROZEN [Suspect]
     Indication: TISSUE SEALING
     Route: 065
  3. TISSEEL VH/SD FROZEN [Suspect]
     Indication: OFF LABEL USE
     Route: 065

REACTIONS (2)
  - DRUG INEFFECTIVE FOR UNAPPROVED INDICATION [None]
  - INTRACRANIAL HYPOTENSION [None]
